FAERS Safety Report 10387701 (Version 1)
Quarter: 2014Q3

REPORT INFORMATION
  Report Type: Spontaneous
  Country: US (occurrence: None)
  Receive Date: 20140814
  Receipt Date: 20140814
  Transmission Date: 20150326
  Serious: Yes (Life-Threatening, Hospitalization, Other)
  Sender: FDA-Public Use
  Company Number: None

PATIENT
  Age: 56 Year
  Sex: Male
  Weight: 124.74 kg

DRUGS (2)
  1. XARELTO [Suspect]
     Active Substance: RIVAROXABAN
     Indication: THROMBOSIS
     Dosage: 1 PILL ONCE DAILY TAKEN BY MOUTH
     Route: 048
  2. XARELTO [Suspect]
     Active Substance: RIVAROXABAN
     Indication: PULMONARY THROMBOSIS
     Dosage: 1 PILL ONCE DAILY TAKEN BY MOUTH
     Route: 048

REACTIONS (4)
  - Thrombosis [None]
  - Treatment failure [None]
  - Condition aggravated [None]
  - Peripheral swelling [None]

NARRATIVE: CASE EVENT DATE: 20140711
